FAERS Safety Report 19984164 (Version 1)
Quarter: 2021Q4

REPORT INFORMATION
  Report Type: Spontaneous
  Country: FR (occurrence: FR)
  Receive Date: 20211021
  Receipt Date: 20211021
  Transmission Date: 20220303
  Serious: Yes (Other)
  Sender: FDA-Public Use
  Company Number: None

PATIENT
  Age: 61 Year
  Sex: Male

DRUGS (2)
  1. ACETAMINOPHEN [Suspect]
     Active Substance: ACETAMINOPHEN
     Indication: Product used for unknown indication
     Dosage: 24 DOSAGE FORM
     Route: 045
     Dates: start: 20210127
  2. COCAINE [Suspect]
     Active Substance: COCAINE
     Dosage: UNK, JUSQUA 2G/J
     Route: 065

REACTIONS (2)
  - Toxicity to various agents [Unknown]
  - Product use issue [Unknown]

NARRATIVE: CASE EVENT DATE: 20210127
